FAERS Safety Report 9117827 (Version 1)
Quarter: 2013Q1

REPORT INFORMATION
  Report Type: Spontaneous
  Country: US (occurrence: US)
  Receive Date: 20130225
  Receipt Date: 20130225
  Transmission Date: 20140127
  Serious: No
  Sender: FDA-Public Use
  Company Number: US-009507513-1302USA010075

PATIENT
  Sex: Female

DRUGS (12)
  1. SAPHRIS [Suspect]
     Indication: BIPOLAR DISORDER
     Dosage: 10 MG, BID
     Route: 060
     Dates: start: 20121121, end: 20130130
  2. LAMICTAL [Concomitant]
     Dosage: 200 MG
  3. LOVASTATIN [Concomitant]
     Dosage: 40 MG
  4. METFORMIN [Concomitant]
     Dosage: 1000 MG
  5. ALLOPURINOL [Concomitant]
     Dosage: 100 MG
  6. COLCHICINE [Concomitant]
     Dosage: 0.6 MG
  7. FEOSOL [Concomitant]
     Dosage: 65 MG
  8. METOPROLOL [Concomitant]
     Dosage: 25 MG
  9. NABUMETONE [Concomitant]
     Dosage: 750 MG
  10. NORVASC [Concomitant]
     Dosage: 10 MG
  11. OMEPRAZOLE [Concomitant]
     Dosage: 20 MG
  12. TRAMADOL HYDROCHLORIDE [Concomitant]
     Dosage: 50 MG

REACTIONS (2)
  - Irritability [Recovering/Resolving]
  - Drug ineffective [Recovering/Resolving]
